FAERS Safety Report 7863332-0 (Version None)
Quarter: 2011Q4

REPORT INFORMATION
  Report Type: 
  Country: None (occurrence: None)
  Receive Date: 20111027
  Receipt Date: 20101202
  Transmission Date: 20120403
  Serious: No
  Sender: FDA-Public Use
  Company Number: US-AMGEN-KDL352173

PATIENT
  Age: 61 Year
  Sex: Female

DRUGS (5)
  1. GOLIMUMAB [Concomitant]
  2. ENBREL [Suspect]
     Dosage: 50 MG, UNK
     Route: 058
  3. ENBREL [Suspect]
     Dosage: 50 MG, QWK
     Dates: start: 20050101, end: 20090101
  4. ENBREL [Suspect]
     Indication: RHEUMATOID ARTHRITIS
     Dosage: 50 MG, 2 TIMES/WK
     Dates: start: 20050101, end: 20090101
  5. HUMIRA [Concomitant]

REACTIONS (6)
  - INJECTION SITE PAIN [None]
  - PAIN IN EXTREMITY [None]
  - INGROWN HAIR [None]
  - BLOOD CALCIUM INCREASED [None]
  - RASH [None]
  - SINUSITIS [None]
